FAERS Safety Report 16595303 (Version 1)
Quarter: 2019Q3

REPORT INFORMATION
  Report Type: Spontaneous
  Country: DE (occurrence: DE)
  Receive Date: 20190718
  Receipt Date: 20190718
  Transmission Date: 20191004
  Serious: Yes (Death, Hospitalization)
  Sender: FDA-Public Use
  Company Number: DE-ASTRAZENECA-2019SE99723

PATIENT
  Age: 61 Year
  Sex: Female

DRUGS (4)
  1. QUETIAPINE. [Suspect]
     Active Substance: QUETIAPINE
     Dosage: 100 MG, NK
     Route: 048
  2. FLUANXOL [Suspect]
     Active Substance: FLUPENTIXOL
     Dosage: 2 MG, NK
     Route: 065
  3. CHLORPROTHIXENE [Suspect]
     Active Substance: CHLORPROTHIXENE
     Dosage: 100 MG, NK
     Route: 065
  4. ARIPIPRAZOLE. [Suspect]
     Active Substance: ARIPIPRAZOLE
     Dosage: 10 MG, NK
     Route: 065

REACTIONS (1)
  - Cardiac arrest [Fatal]

NARRATIVE: CASE EVENT DATE: 20170712
